FAERS Safety Report 9723709 (Version 2)
Quarter: 2014Q1

REPORT INFORMATION
  Report Type: Spontaneous
  Country: US (occurrence: US)
  Receive Date: 20131202
  Receipt Date: 20140130
  Transmission Date: 20141002
  Serious: Yes (Other)
  Sender: FDA-Public Use
  Company Number: US-TEVA-447238USA

PATIENT
  Age: 22 Year
  Sex: Female
  Weight: 75.36 kg

DRUGS (3)
  1. PARAGARD 380A [Suspect]
     Indication: CONTRACEPTION
     Route: 015
     Dates: start: 20120928, end: 20131122
  2. PARAGARD 380A [Suspect]
     Route: 015
     Dates: start: 20131220
  3. METFORMIN [Concomitant]
     Indication: POLYCYSTIC OVARIES
     Dosage: 1000 MILLIGRAM DAILY;

REACTIONS (2)
  - Haemorrhage [Unknown]
  - Device expulsion [Recovered/Resolved]
